FAERS Safety Report 12161419 (Version 1)
Quarter: 2016Q1

REPORT INFORMATION
  Report Type: Spontaneous
  Country: US (occurrence: US)
  Receive Date: 20160308
  Receipt Date: 20160308
  Transmission Date: 20160526
  Serious: No
  Sender: FDA-Public Use
  Company Number: US-009507513-1602USA009583

PATIENT
  Age: 59 Year
  Sex: Male

DRUGS (2)
  1. BELSOMRA [Suspect]
     Active Substance: SUVOREXANT
     Indication: INSOMNIA
     Dosage: 10 MG/ONCE NIGHTLY
     Route: 048
     Dates: start: 201601
  2. TRAZODONE HYDROCHLORIDE. [Suspect]
     Active Substance: TRAZODONE HYDROCHLORIDE
     Route: 048

REACTIONS (3)
  - Blood urine present [Not Recovered/Not Resolved]
  - Erection increased [Recovered/Resolved]
  - Priapism [Unknown]

NARRATIVE: CASE EVENT DATE: 20160218
